FAERS Safety Report 5185710-3 (Version None)
Quarter: 2006Q4

REPORT INFORMATION
  Report Type: 
  Country: None (occurrence: None)
  Receive Date: 20061220
  Receipt Date: 20060829
  Transmission Date: 20070319
  Serious: No
  Sender: FDA-Public Use
  Company Number: US-GLAXOSMITHKLINE-A0618447A

PATIENT
  Age: 58 Year
  Sex: Female

DRUGS (3)
  1. NICODERM CQ [Suspect]
  2. EQUATE NTS 21MG [Suspect]
  3. EQUATE NTS 14MG [Suspect]

REACTIONS (6)
  - APPLICATION SITE EXCORIATION [None]
  - APPLICATION SITE IRRITATION [None]
  - APPLICATION SITE PAIN [None]
  - APPLICATION SITE PRURITUS [None]
  - APPLICATION SITE RASH [None]
  - APPLICATION SITE REACTION [None]
